FAERS Safety Report 11844734 (Version 1)
Quarter: 2015Q4

REPORT INFORMATION
  Report Type: Spontaneous
  Country: FR (occurrence: FR)
  Receive Date: 20151217
  Receipt Date: 20151217
  Transmission Date: 20160305
  Serious: Yes (Other)
  Sender: FDA-Public Use
  Company Number: FR-SYMPLMED PHARMACEUTICALS-2015SYMPLMED000100

PATIENT

DRUGS (1)
  1. PERINDOPRIL MYLAN 2 MG, COMPRIM? [Suspect]
     Active Substance: PERINDOPRIL
     Indication: PRODUCT USED FOR UNKNOWN INDICATION
     Dosage: 8 MG, UNK

REACTIONS (4)
  - Product substitution issue [None]
  - Headache [Unknown]
  - Drug ineffective [Unknown]
  - Blood pressure increased [None]

NARRATIVE: CASE EVENT DATE: 2015
